FAERS Safety Report 8020367-5 (Version None)
Quarter: 2012Q1

REPORT INFORMATION
  Report Type: 
  Country: None (occurrence: None)
  Receive Date: 20120103
  Receipt Date: 20111222
  Transmission Date: 20120608
  Serious: Yes (Hospitalization, Other)
  Sender: FDA-Public Use
  Company Number: US-ELI_LILLY_AND_COMPANY-US201004003145

PATIENT
  Sex: Female

DRUGS (4)
  1. FORTEO [Suspect]
     Indication: OSTEOPOROSIS
     Dosage: 20 UG, DAILY (1/D)
     Dates: start: 20100324, end: 20100401
  2. FORTEO [Suspect]
     Dosage: 20 UG, QD
  3. FORTEO [Suspect]
     Dosage: 20 UG, DAILY (1/D)
     Dates: start: 20100503
  4. FORTEO [Suspect]
     Dosage: 20 UG, QD

REACTIONS (15)
  - ARTHRALGIA [None]
  - VOMITING [None]
  - ADVERSE EVENT [None]
  - CEREBROVASCULAR ACCIDENT [None]
  - INJECTION SITE HAEMATOMA [None]
  - UPPER LIMB FRACTURE [None]
  - HEPATIC ENZYME INCREASED [None]
  - MALAISE [None]
  - CLUMSINESS [None]
  - HOSPITALISATION [None]
  - FEMUR FRACTURE [None]
  - NAUSEA [None]
  - FALL [None]
  - MYOCARDIAL INFARCTION [None]
  - RETCHING [None]
